FAERS Safety Report 23965350 (Version 1)
Quarter: 2024Q2

REPORT INFORMATION
  Report Type: Spontaneous
  Country: CA (occurrence: CA)
  Receive Date: 20240612
  Receipt Date: 20240612
  Transmission Date: 20240716
  Serious: Yes (Other)
  Sender: FDA-Public Use
  Company Number: CA-SANDOZ-SDZ2024CA056636

PATIENT
  Age: 42 Year
  Sex: Female

DRUGS (5)
  1. ANASTROZOLE [Suspect]
     Active Substance: ANASTROZOLE
     Indication: Product used for unknown indication
     Dosage: UNK
     Route: 065
  2. GOSERELIN [Suspect]
     Active Substance: GOSERELIN
     Dosage: 3.6 MG, 1 EVERY 1 MONTHS
     Route: 058
  3. GOSERELIN [Suspect]
     Active Substance: GOSERELIN
     Dosage: 3.6 MG, 1 EVERY 1 MONTHS
     Route: 058
  4. GOSERELIN [Suspect]
     Active Substance: GOSERELIN
     Indication: Product used for unknown indication
     Dosage: UNK
     Route: 065
  5. VERZENIO [Concomitant]
     Active Substance: ABEMACICLIB
     Indication: Product used for unknown indication
     Dosage: UNK
     Route: 065

REACTIONS (1)
  - Brain fog [Recovering/Resolving]
